FAERS Safety Report 8810971 (Version 1)
Quarter: 2012Q4

REPORT INFORMATION
  Report Type: 
  Country: US (occurrence: US)
  Receive Date: 20120927
  Receipt Date: 20120927
  Transmission Date: 20130627
  Serious: Yes (Hospitalization, Other)
  Sender: FDA-Public Use
  Company Number: US-SANOFI-AVENTIS-2012SA068797

PATIENT
  Age: 93 Year
  Sex: Male

DRUGS (1)
  1. LANTUS [Suspect]
     Indication: DIABETES MELLITUS
     Dosage: Dose of 5-9 units QD
     Route: 058
     Dates: start: 2002

REACTIONS (1)
  - Cardiac pacemaker insertion [Recovered/Resolved]
